FAERS Safety Report 5745448-8 (Version None)
Quarter: 2008Q2

REPORT INFORMATION
  Report Type: 
  Country: None (occurrence: None)
  Receive Date: 20080521
  Receipt Date: 20080509
  Transmission Date: 20081010
  Serious: Yes (Other)
  Sender: FDA-Public Use
  Company Number: US-SANOFI-SYNTHELABO-A03200800756

PATIENT
  Sex: Male
  Weight: 72.6 kg

DRUGS (9)
  1. LOTREL [Concomitant]
     Indication: BLOOD PRESSURE
     Dosage: 10/40 QD UNK
     Route: 065
     Dates: start: 20020101
  2. LIPITOR [Concomitant]
     Indication: DRUG USE FOR UNKNOWN INDICATION
     Dosage: UNK
     Route: 065
  3. COREG [Concomitant]
     Indication: BLOOD PRESSURE
     Route: 065
     Dates: start: 20020101
  4. PLAVIX [Suspect]
     Indication: STENT PLACEMENT
     Route: 048
     Dates: start: 20080103
  5. PLAVIX [Suspect]
     Indication: CARDIAC DISORDER
     Route: 048
     Dates: start: 20080103
  6. ZYRTEC [Concomitant]
     Indication: HYPERSENSITIVITY
     Route: 065
     Dates: start: 20020101
  7. VYTORIN [Concomitant]
     Indication: BLOOD CHOLESTEROL
     Dosage: 10/40 ONE QD UNK
     Route: 065
     Dates: start: 20020101
  8. TRICOR [Concomitant]
     Indication: BLOOD TRIGLYCERIDES
     Route: 065
     Dates: start: 20020101
  9. DIOVAN [Concomitant]
     Indication: BLOOD PRESSURE
     Dosage: UNK
     Route: 065
     Dates: start: 20020101

REACTIONS (1)
  - DYSGEUSIA [None]
